FAERS Safety Report 9358321 (Version 1)
Quarter: 2013Q4

REPORT INFORMATION
  Report Type: Spontaneous
  Country: US (occurrence: None)
  Receive Date: 20130619
  Receipt Date: 20130619
  Transmission Date: 20140711
  Serious: Yes (Disabling)
  Sender: FDA-Public Use
  Company Number: None

PATIENT
  Sex: Female

DRUGS (2)
  1. BIOTENE DRY MOUTH ORAL RINSE [Suspect]
     Indication: PRODUCT USED FOR UNKNOWN INDICATION
     Route: 004
  2. BIOTENE DRY MOUTH ORAL RINSE [Suspect]
     Indication: PRODUCT USED FOR UNKNOWN INDICATION
     Route: 004

REACTIONS (7)
  - Tooth infection [None]
  - Sepsis [None]
  - Cardiac disorder [None]
  - General physical health deterioration [None]
  - Feeling abnormal [None]
  - Malaise [None]
  - Oral infection [None]
